FAERS Safety Report 10019791 (Version 1)
Quarter: 2014Q1

REPORT INFORMATION
  Report Type: Spontaneous
  Country: US (occurrence: US)
  Receive Date: 20140318
  Receipt Date: 20140318
  Transmission Date: 20141002
  Serious: Yes (Death)
  Sender: FDA-Public Use
  Company Number: US-TEVA-468585USA

PATIENT
  Sex: Male
  Weight: 72.64 kg

DRUGS (2)
  1. FENTORA [Suspect]
     Indication: CANCER PAIN
     Dates: start: 201205
  2. OXYCONTIN [Concomitant]
     Indication: CANCER PAIN

REACTIONS (1)
  - Death [Fatal]
